FAERS Safety Report 5007542-9 (Version None)
Quarter: 2006Q2

REPORT INFORMATION
  Report Type: 
  Country: None (occurrence: None)
  Receive Date: 20060522
  Receipt Date: 20060403
  Transmission Date: 20061013
  Serious: Yes (Hospitalization)
  Sender: FDA-Public Use
  Company Number: 2006SE01931

PATIENT
  Age: 24376 Day
  Sex: Male
  Weight: 74 kg

DRUGS (9)
  1. CANDESARTAN CILEXETIL [Suspect]
     Indication: CARDIAC FAILURE
     Route: 048
     Dates: start: 20051207, end: 20051220
  2. CANDESARTAN CILEXETIL [Suspect]
     Route: 048
     Dates: start: 20051221, end: 20060123
  3. COVERSUM [Concomitant]
     Route: 048
     Dates: start: 20000101
  4. CARVEDILOL [Concomitant]
     Route: 048
     Dates: start: 20040101
  5. ISS MONO [Concomitant]
     Route: 065
     Dates: start: 20000101
  6. SPIRONOLACTONE [Concomitant]
     Route: 048
  7. ALLOPURINOL [Concomitant]
     Route: 048
  8. METFORMIN [Concomitant]
     Route: 048
  9. MARCUMAR [Concomitant]
     Route: 048
     Dates: start: 20060101

REACTIONS (14)
  - ARRHYTHMIA [None]
  - ATRIAL FIBRILLATION [None]
  - BLOOD GLUCOSE INCREASED [None]
  - BODY TEMPERATURE INCREASED [None]
  - CIRCULATORY COLLAPSE [None]
  - DEHYDRATION [None]
  - DIARRHOEA [None]
  - DIZZINESS [None]
  - HYPOTENSION [None]
  - LOSS OF CONSCIOUSNESS [None]
  - MALAISE [None]
  - TACHYCARDIA [None]
  - VIRAL INFECTION [None]
  - VOMITING [None]
